FAERS Safety Report 9393929 (Version 2)
Quarter: 2013Q3

REPORT INFORMATION
  Report Type: Report from Study
  Country: DE (occurrence: DE)
  Receive Date: 20130710
  Receipt Date: 20130719
  Transmission Date: 20140515
  Serious: Yes (Hospitalization)
  Sender: FDA-Public Use
  Company Number: DE-BAXTER-2013BAX025620

PATIENT
  Sex: Female

DRUGS (21)
  1. ENDOXAN 1G [Suspect]
     Indication: B-CELL LYMPHOMA
     Route: 042
     Dates: start: 20130529
  2. ENDOXAN 1G [Suspect]
     Route: 042
     Dates: start: 20130612
  3. RITUXIMAB [Suspect]
     Indication: B-CELL LYMPHOMA
     Route: 042
     Dates: start: 20130524
  4. RITUXIMAB [Suspect]
     Route: 042
     Dates: start: 20130611
  5. FILGRASTIM [Suspect]
     Indication: B-CELL LYMPHOMA
     Dosage: 48 IE
     Route: 058
     Dates: start: 20130606
  6. DOXORUBICIN [Suspect]
     Indication: B-CELL LYMPHOMA
     Route: 042
     Dates: start: 20130529
  7. DOXORUBICIN [Suspect]
     Route: 042
     Dates: start: 20130612
  8. VINCRISTINE [Suspect]
     Indication: B-CELL LYMPHOMA
     Route: 042
     Dates: start: 20130529
  9. VINCRISTINE [Suspect]
     Route: 042
     Dates: start: 20130612
  10. PREDNISONE [Suspect]
     Indication: B-CELL LYMPHOMA
     Route: 048
     Dates: start: 20130529
  11. PREDNISONE [Suspect]
     Route: 048
     Dates: start: 20130612
  12. PEGFILGRASTIM [Suspect]
     Indication: B-CELL LYMPHOMA
     Route: 058
     Dates: start: 20130614
  13. ACICLOVIR [Concomitant]
     Indication: PROPHYLAXIS
     Route: 048
  14. CIPROFLOXACIN [Concomitant]
     Indication: PROPHYLAXIS
     Route: 048
  15. POLYETHYLENE GLYCOL [Concomitant]
     Indication: CONSTIPATION
     Route: 048
  16. ALLOPURINOL [Concomitant]
     Indication: HYPERURICAEMIA
     Route: 048
  17. SALVIA OFFICINALIS [Concomitant]
     Indication: HYPERHIDROSIS
     Route: 048
  18. ENOXAPARIN SODIUM [Concomitant]
     Indication: PRODUCT USED FOR UNKNOWN INDICATION
     Route: 065
  19. VALSARTAN [Concomitant]
     Indication: HYPERTENSION
     Dosage: 1X160/25MG PER DAY
     Route: 048
  20. SULFAMETHOXAZOLE/TRIMETHOPRIM [Concomitant]
     Indication: PRODUCT USED FOR UNKNOWN INDICATION
     Dosage: 160+80 MG
     Route: 048
  21. SIMVASTATIN [Concomitant]
     Indication: HYPERCHOLESTEROLAEMIA
     Route: 048

REACTIONS (1)
  - Circulatory collapse [Recovered/Resolved]
